FAERS Safety Report 15090016 (Version 1)
Quarter: 2018Q2

REPORT INFORMATION
  Report Type: Spontaneous
  Country: US (occurrence: US)
  Receive Date: 20180629
  Receipt Date: 20180629
  Transmission Date: 20180711
  Serious: Yes (Hospitalization, Disabling)
  Sender: FDA-Public Use
  Company Number: US-JNJFOC-20180634006

PATIENT
  Age: 72 Year
  Sex: Male
  Weight: 78.93 kg

DRUGS (1)
  1. INVOKANA [Suspect]
     Active Substance: CANAGLIFLOZIN
     Indication: TYPE 2 DIABETES MELLITUS
     Route: 048
     Dates: start: 20130512

REACTIONS (7)
  - Osteomyelitis [Unknown]
  - Gangrene [Unknown]
  - Toe amputation [Recovering/Resolving]
  - Leg amputation [Recovering/Resolving]
  - Osteomyelitis [Unknown]
  - Cellulitis [Unknown]
  - Localised infection [Unknown]

NARRATIVE: CASE EVENT DATE: 201305
